FAERS Safety Report 6269498-0 (Version None)
Quarter: 2009Q3

REPORT INFORMATION
  Report Type: 
  Country: None (occurrence: None)
  Receive Date: 20090714
  Receipt Date: 20090703
  Transmission Date: 20100115
  Serious: Yes (Death)
  Sender: FDA-Public Use
  Company Number: 2009AP002715

PATIENT
  Age: 63 Year
  Sex: Female

DRUGS (4)
  1. TOPIRAMATE [Suspect]
  2. CARBAMAZEPINE [Suspect]
     Dates: start: 20090312
  3. KEPPRA [Suspect]
  4. VIMPAT [Suspect]
     Indication: PARTIAL SEIZURES
     Dates: start: 20090312

REACTIONS (2)
  - CHRONIC OBSTRUCTIVE PULMONARY DISEASE [None]
  - HYPONATRAEMIA [None]
